FAERS Safety Report 6215447-0 (Version None)
Quarter: 2009Q2

REPORT INFORMATION
  Report Type: 
  Country: None (occurrence: None)
  Receive Date: 20090603
  Receipt Date: 20090422
  Transmission Date: 20091009
  Serious: Yes (Other)
  Sender: FDA-Public Use
  Company Number: 0904-SPO-SPLN-0043 (0)

PATIENT
  Age: 10 Year
  Sex: Female

DRUGS (1)
  1. SUPPRELIN LA [Suspect]
     Indication: PRECOCIOUS PUBERTY
     Dosage: 50 MG, 1 IN 1 Y, SUB Q. IMPLANT
     Route: 058
     Dates: start: 20080409

REACTIONS (5)
  - CAROTID ARTERY OCCLUSION [None]
  - FALL [None]
  - OCULAR VASCULAR DISORDER [None]
  - OSTEOCHONDROMA [None]
  - VASCULAR OCCLUSION [None]
